FAERS Safety Report 8301050-5 (Version None)
Quarter: 2012Q2

REPORT INFORMATION
  Report Type: 
  Country: None (occurrence: None)
  Receive Date: 20120420
  Receipt Date: 20120406
  Transmission Date: 20120825
  Serious: No
  Sender: FDA-Public Use
  Company Number: US-ENDO PHARMACEUTICALS INC.-PERC20120069

PATIENT
  Sex: Male

DRUGS (5)
  1. PERCOCET [Suspect]
     Indication: OSTEOARTHRITIS
  2. PERCOCET [Suspect]
     Indication: PSORIATIC ARTHROPATHY
     Route: 048
     Dates: start: 20120201
  3. OPANA [Concomitant]
     Indication: PSORIATIC ARTHROPATHY
     Route: 048
     Dates: end: 20120201
  4. ENBREL [Concomitant]
     Indication: PSORIATIC ARTHROPATHY
  5. OPANA [Concomitant]
     Indication: OSTEOARTHRITIS

REACTIONS (1)
  - DRUG INEFFECTIVE [None]
